FAERS Safety Report 8195756-9 (Version None)
Quarter: 2012Q1

REPORT INFORMATION
  Report Type: 
  Country: None (occurrence: None)
  Receive Date: 20120308
  Receipt Date: 20120305
  Transmission Date: 20120608
  Serious: Yes (Other)
  Sender: FDA-Public Use
  Company Number: US-PFIZER INC-2012030888

PATIENT
  Sex: Female
  Weight: 36.281 kg

DRUGS (13)
  1. DETROL LA [Suspect]
     Indication: HYPERTONIC BLADDER
     Dosage: 4 MG, 1X/DAY
     Route: 048
  2. CALCIUM WITH VITAMIN D [Concomitant]
     Dosage: ONCE DAILY
     Route: 048
  3. TRAMADOL HYDROCHLORIDE [Concomitant]
     Dosage: 50 MG, AS NEEDED (EVERY 4 HOURS PRN)
     Route: 048
  4. ALBUTEROL [Concomitant]
     Dosage: 0.083% INHAL SOLN 2.5 MG / 3 ML, 1 PER NEBULIZER EVERY 4HOURS AS NEEDED
  5. PREDNISONE [Concomitant]
     Dosage: 10 MG, 1X/DAY
     Route: 048
  6. BISOPROLOL [Concomitant]
     Dosage: UNK
  7. PAROXETINE HYDROCHLORIDE [Concomitant]
     Dosage: 10 MG, 1X/DAY
     Route: 048
  8. SALBUTAMOL [Concomitant]
     Dosage: 90UG MCG/ACTUATION, 2 PUFFS EVERY 4 HOURS AS NEEDED PM
     Route: 055
  9. SINGULAIR [Concomitant]
     Dosage: 10 MG, 1X/DAY
     Route: 048
  10. SPIRIVA [Concomitant]
     Dosage: 18 MCG CP-HANDIHALER, ONCE DAILY
     Route: 055
  11. ACETYLSALICYLIC ACID [Concomitant]
     Indication: ANTICOAGULANT THERAPY
     Dosage: 81 MG, 2X/DAY
  12. ADVAIR DISKUS 100/50 [Concomitant]
     Dosage: 50 - 500MCG/DOSE, 1 INHALATION TWICE DAILY
     Route: 055
  13. DURAGESIC-100 [Concomitant]
     Dosage: 25 MCG/HR, 1 PATCH EVERY 72 HOURS

REACTIONS (2)
  - PILOERECTION [None]
  - CEREBROVASCULAR ACCIDENT [None]
